FAERS Safety Report 18520039 (Version 1)
Quarter: 2020Q4

REPORT INFORMATION
  Report Type: Spontaneous
  Country: US (occurrence: US)
  Receive Date: 20201118
  Receipt Date: 20201118
  Transmission Date: 20210114
  Serious: Yes (Other)
  Sender: FDA-Public Use
  Company Number: US-LUNDBECK-DKLU3024026

PATIENT
  Age: 73 Year
  Sex: Male
  Weight: 95 kg

DRUGS (1)
  1. NORTHERA [Suspect]
     Active Substance: DROXIDOPA
     Indication: ORTHOSTATIC HYPOTENSION
     Dosage: INCREASE BY 100MG PER DOSE EVERY 1 TO 2 DAYS UNTIL ARCHIVE CONTROL OR REACH A MAXIMUM OF 600MG PER D
     Route: 048

REACTIONS (2)
  - Loss of consciousness [Unknown]
  - Product dose omission issue [Unknown]

NARRATIVE: CASE EVENT DATE: 202011
